FAERS Safety Report 4881851-6 (Version None)
Quarter: 2006Q1

REPORT INFORMATION
  Report Type: 
  Country: None (occurrence: None)
  Receive Date: 20060117
  Receipt Date: 20051011
  Transmission Date: 20060701
  Serious: Yes (Life-Threatening, Hospitalization)
  Sender: FDA-Public Use
  Company Number: PL-BRISTOL-MYERS SQUIBB COMPANY-13142237

PATIENT
  Age: 70 Year
  Sex: Male

DRUGS (4)
  1. CETUXIMAB [Suspect]
     Indication: NON-SMALL CELL LUNG CANCER
     Dosage: MOST RECENT INFUSION 08-JUL-2005 (6TH INFUSION).
     Route: 041
     Dates: start: 20050603
  2. CISPLATIN [Suspect]
     Indication: NON-SMALL CELL LUNG CANCER
     Dosage: MOST RECENT INFUSION 01-JUL-05 (2ND INFUSION).
     Route: 042
     Dates: start: 20050603
  3. VINORELBINE [Suspect]
     Indication: NON-SMALL CELL LUNG CANCER
     Dosage: MOST RECENT INFUSION 08-JUL-05 (4TH INFUSION).
     Route: 042
     Dates: start: 20050603
  4. TRAMADOL HCL [Concomitant]
     Indication: MYALGIA
     Dates: start: 20050710

REACTIONS (2)
  - GRANULOCYTES ABNORMAL [None]
  - HAEMOGLOBIN DECREASED [None]
